FAERS Safety Report 9338917 (Version 1)
Quarter: 2013Q2

REPORT INFORMATION
  Report Type: Spontaneous
  Country: CO (occurrence: CO)
  Receive Date: 20130610
  Receipt Date: 20130610
  Transmission Date: 20140414
  Serious: Yes (Other)
  Sender: FDA-Public Use
  Company Number: CO-PFIZER INC-2013171324

PATIENT
  Age: 68 Year
  Sex: Male

DRUGS (1)
  1. DETRUSITOL SR [Suspect]
     Indication: URINARY INCONTINENCE
     Dosage: 4 MG, 1X/DAY
     Route: 048
     Dates: start: 20130519, end: 20130522

REACTIONS (1)
  - Asphyxia [Recovering/Resolving]
